FAERS Safety Report 4612020-2 (Version None)
Quarter: 2005Q2

REPORT INFORMATION
  Report Type: 
  Country: None (occurrence: None)
  Receive Date: 20050308
  Receipt Date: 20050105
  Transmission Date: 20051028
  Serious: Yes (Other)
  Sender: FDA-Public Use
  Company Number: 2005UW00215

PATIENT
  Age: 73 Year
  Sex: Male
  Weight: 100 kg

DRUGS (4)
  1. CRESTOR [Suspect]
     Indication: BLOOD CHOLESTEROL INCREASED
     Dosage: 10 MG DAILY PO
     Route: 048
     Dates: start: 20031201, end: 20041201
  2. CRESTOR [Suspect]
     Indication: BLOOD CHOLESTEROL INCREASED
     Dosage: 10 MG DAILY PO
     Route: 048
     Dates: start: 20041201, end: 20050101
  3. TRIAMTERENE [Concomitant]
  4. DOXAZOSIN MESYLATE [Concomitant]

REACTIONS (3)
  - FLUID RETENTION [None]
  - GOUT [None]
  - PAIN IN EXTREMITY [None]
